FAERS Safety Report 8404306 (Version 4)
Quarter: 2013Q1

REPORT INFORMATION
  Report Type: Spontaneous
  Country: US (occurrence: US)
  Receive Date: 20120214
  Receipt Date: 20130311
  Transmission Date: 20140127
  Serious: Yes (Death, Hospitalization, Other)
  Sender: FDA-Public Use
  Company Number: US-PFIZER INC-2012034632

PATIENT
  Age: 60 Year
  Sex: Male
  Weight: 85.3 kg

DRUGS (8)
  1. RAPAMUNE [Suspect]
     Indication: LIVER TRANSPLANT
     Dosage: 0.5 MG, 1X/DAY
     Route: 048
     Dates: start: 20110526
  2. RAPAMUNE [Suspect]
     Dosage: 1.5 MG, 1 MG AT 18:00 AND 0.5 MG AT 16:00
  3. RAPAMUNE [Suspect]
     Dosage: 1 MG, 1X/DAY (DAILY)
     Route: 048
     Dates: start: 20120918
  4. RAPAMUNE [Suspect]
     Dosage: 0.5 MG, 1X/DAY (DAILY)
     Route: 048
  5. BUMEX [Concomitant]
     Dosage: 0.5 MG, 2X/DAY
  6. K-TAB [Concomitant]
     Dosage: 20 MG, 2X/DAY
  7. LANTUS [Concomitant]
     Dosage: 18 IU, 1X/DAY
     Route: 058
  8. NOVOLOG [Concomitant]
     Dosage: 8 UNITS, AS NEEDED
     Route: 058

REACTIONS (8)
  - Hepatic cirrhosis [Fatal]
  - Liver transplant rejection [Unknown]
  - Peritonitis bacterial [Unknown]
  - Streptococcal bacteraemia [Unknown]
  - Renal failure chronic [Unknown]
  - Deep vein thrombosis [Unknown]
  - Urinary tract infection [Unknown]
  - Off label use [Unknown]
